FAERS Safety Report 12474354 (Version 1)
Quarter: 2016Q2

REPORT INFORMATION
  Report Type: Spontaneous
  Country: US (occurrence: None)
  Receive Date: 20160616
  Receipt Date: 20160616
  Transmission Date: 20160815
  Serious: No
  Sender: FDA-Public Use
  Company Number: None

PATIENT
  Age: 60 Year
  Sex: Female

DRUGS (8)
  1. ATENOL [Concomitant]
     Active Substance: ATENOLOL
  2. SOVALDI [Suspect]
     Active Substance: SOFOSBUVIR
     Indication: CHRONIC HEPATITIS C
     Route: 048
     Dates: start: 201605
  3. NEURONTIN [Concomitant]
     Active Substance: GABAPENTIN
  4. XOPENEX [Concomitant]
     Active Substance: LEVALBUTEROL HYDROCHLORIDE
  5. VIVELL-DOT [Concomitant]
  6. PROTONIX [Concomitant]
     Active Substance: PANTOPRAZOLE SODIUM
  7. AZELSTINE [Concomitant]
  8. OVAR [Concomitant]

REACTIONS (5)
  - Chills [None]
  - Weight increased [None]
  - Fluid retention [None]
  - Headache [None]
  - Fatigue [None]

NARRATIVE: CASE EVENT DATE: 2016
